FAERS Safety Report 22635552 (Version 2)
Quarter: 2024Q3

REPORT INFORMATION
  Report Type: Report from Study
  Country: GB (occurrence: GB)
  Receive Date: 20230623
  Receipt Date: 20240923
  Transmission Date: 20241017
  Serious: No
  Sender: ROCHE
  Company Number: GB-ROCHE-3371592

PATIENT
  Age: 39 Year
  Sex: Female

DRUGS (9)
  1. OCRELIZUMAB [Suspect]
     Active Substance: OCRELIZUMAB
     Indication: Relapsing-remitting multiple sclerosis
     Dosage: SUBSEQUENT DOSE OF 250 ML ON 16/DEC/2020
     Route: 042
     Dates: start: 20201201, end: 20201201
  2. OCRELIZUMAB [Suspect]
     Active Substance: OCRELIZUMAB
     Dosage: SUBSEQUENT DOSE OF 500 ML ON 22/DEC/2021, 22/JUN/2022, 21/DEC/2022
     Route: 042
     Dates: start: 20210602, end: 20210602
  3. OCRELIZUMAB [Suspect]
     Active Substance: OCRELIZUMAB
     Dosage: SUBSEQUENT DOSE OF 500 ML ON 22/DEC/2021, 22/JUN/2022, 21/DEC/2022
     Route: 042
     Dates: start: 20240621, end: 20240621
  4. OCRELIZUMAB [Suspect]
     Active Substance: OCRELIZUMAB
     Dosage: SUBSEQUENT DOSE OF 500 ML ON 22/DEC/2021, 22/JUN/2022, 21/DEC/2022
     Route: 042
     Dates: start: 20231127, end: 20231127
  5. OCRELIZUMAB [Suspect]
     Active Substance: OCRELIZUMAB
     Dosage: SUBSEQUENT DOSE OF 500 ML ON 22/DEC/2021, 22/JUN/2022, 21/DEC/2022
     Route: 042
     Dates: start: 20230621, end: 20230621
  6. OCRELIZUMAB [Suspect]
     Active Substance: OCRELIZUMAB
     Dosage: SUBSEQUENT DOSE OF 500 ML ON 22/DEC/2021, 22/JUN/2022, 21/DEC/2022
     Route: 042
     Dates: start: 20230621, end: 20230621
  7. GABAPENTIN [Concomitant]
     Active Substance: GABAPENTIN
     Route: 048
     Dates: start: 202009
  8. COCODAMOL [Concomitant]
     Active Substance: ACETAMINOPHEN\CODEINE PHOSPHATE
     Route: 048
     Dates: start: 202009
  9. SOTROVIMAB [Concomitant]
     Active Substance: SOTROVIMAB
     Route: 042
     Dates: start: 20220526, end: 20220526

REACTIONS (1)
  - COVID-19 [Recovered/Resolved]

NARRATIVE: CASE EVENT DATE: 20220501
